FAERS Safety Report 6403405-2 (Version None)
Quarter: 2009Q4

REPORT INFORMATION
  Report Type: 
  Country: None (occurrence: None)
  Receive Date: 20091016
  Receipt Date: 20091014
  Transmission Date: 20100525
  Serious: Yes (Other)
  Sender: FDA-Public Use
  Company Number: FR-BRISTOL-MYERS SQUIBB COMPANY-14805634

PATIENT
  Age: 50 Year
  Sex: Female
  Weight: 75 kg

DRUGS (4)
  1. IXABEPILONE [Suspect]
     Indication: BREAST CANCER
     Dosage: CUMULATIVE DOSE-74MG
     Route: 042
     Dates: start: 20090819, end: 20090819
  2. CYCLOPHOSPHAMIDE [Suspect]
     Indication: BREAST CANCER
     Dosage: CUMULATIVE DOSE-2820MG
     Route: 042
     Dates: start: 20090608, end: 20090727
  3. FLUOROURACIL [Suspect]
     Indication: BREAST CANCER
     Dosage: CUMULATIVE DOSE-2775MG
     Route: 042
     Dates: start: 20090608, end: 20090727
  4. EPIRUBICIN [Suspect]
     Indication: BREAST CANCER
     Dosage: CUMULATIVE DOSE-558MG
     Route: 042
     Dates: start: 20090608, end: 20090727

REACTIONS (1)
  - PERIPHERAL SENSORY NEUROPATHY [None]
